FAERS Safety Report 15991698 (Version 1)
Quarter: 2019Q1

REPORT INFORMATION
  Report Type: Spontaneous
  Country: JP (occurrence: JP)
  Receive Date: 20190221
  Receipt Date: 20190221
  Transmission Date: 20190418
  Serious: Yes (Other)
  Sender: FDA-Public Use
  Company Number: JP-PFIZER INC-2019074244

PATIENT
  Age: 4 Year
  Sex: Female

DRUGS (1)
  1. ZITHROMAC 10% [Suspect]
     Active Substance: AZITHROMYCIN ANHYDROUS
     Dosage: UNK
     Dates: start: 201509, end: 201509

REACTIONS (2)
  - Pulmonary arterial hypertension [Unknown]
  - Eosinophilia [Unknown]
